FAERS Safety Report 7162826-3 (Version None)
Quarter: 2010Q4

REPORT INFORMATION
  Report Type: 
  Country: None (occurrence: None)
  Receive Date: 20101215
  Receipt Date: 20091222
  Transmission Date: 20110411
  Serious: Yes (Hospitalization, Other)
  Sender: FDA-Public Use
  Company Number: US-PFIZER INC-2009283123

PATIENT
  Sex: Female

DRUGS (4)
  1. LYRICA [Suspect]
     Indication: FIBROMYALGIA
     Dosage: FREQUENCY: 2X/DAY,
     Dates: start: 20090101, end: 20090101
  2. LEVAQUIN [Suspect]
     Route: 042
     Dates: start: 20090101
  3. ALEVE (CAPLET) [Concomitant]
     Dosage: UNK
  4. MICARDIS [Concomitant]
     Dosage: UNK

REACTIONS (6)
  - ASTHMA [None]
  - MOUTH ULCERATION [None]
  - RASH [None]
  - SWOLLEN TONGUE [None]
  - THYROID DISORDER [None]
  - URTICARIA [None]
